FAERS Safety Report 20620582 (Version 1)
Quarter: 2022Q1

REPORT INFORMATION
  Report Type: Spontaneous
  Country: JP (occurrence: JP)
  Receive Date: 20220322
  Receipt Date: 20220322
  Transmission Date: 20220424
  Serious: Yes (Hospitalization, Other)
  Sender: FDA-Public Use
  Company Number: JP-GLAXOSMITHKLINE-JP2022JPN046916

PATIENT
  Age: 74 Year
  Sex: Male

DRUGS (1)
  1. SOTROVIMAB [Suspect]
     Active Substance: SOTROVIMAB
     Indication: COVID-19
     Dosage: 8 ML, QD, ONCE ON 9 MARCH 2022
     Dates: start: 20220309, end: 20220309

REACTIONS (2)
  - Dyspnoea [Recovered/Resolved]
  - Anaphylactic shock [Unknown]

NARRATIVE: CASE EVENT DATE: 20220309
